FAERS Safety Report 22078343 (Version 1)
Quarter: 2023Q1

REPORT INFORMATION
  Report Type: Spontaneous
  Country: CA (occurrence: CA)
  Receive Date: 20230309
  Receipt Date: 20230309
  Transmission Date: 20230417
  Serious: Yes (Hospitalization, Other)
  Sender: FDA-Public Use
  Company Number: CA-002147023-NVSC2023CA049443

PATIENT
  Age: 21 Day
  Sex: Female

DRUGS (1)
  1. CEFTRIAXONE SODIUM [Suspect]
     Active Substance: CEFTRIAXONE SODIUM
     Indication: Lyme disease
     Dosage: 1 DOSAGE FORM (TOTAL)
     Route: 042

REACTIONS (3)
  - Sepsis neonatal [Recovered/Resolved]
  - Jarisch-Herxheimer reaction [Recovered/Resolved]
  - Off label use [Recovered/Resolved]
